FAERS Safety Report 18322099 (Version 1)
Quarter: 2020Q3

REPORT INFORMATION
  Report Type: Spontaneous
  Country: US (occurrence: US)
  Receive Date: 20200928
  Receipt Date: 20200928
  Transmission Date: 20201103
  Serious: Yes (Death, Other)
  Sender: FDA-Public Use
  Company Number: US-JNJFOC-20200928172

PATIENT
  Age: 24 Year
  Sex: Male

DRUGS (1)
  1. LEVAQUIN [Suspect]
     Active Substance: LEVOFLOXACIN
     Indication: INFECTION PROPHYLAXIS
     Route: 065

REACTIONS (6)
  - Bipolar disorder [Unknown]
  - Thinking abnormal [Unknown]
  - Palpitations [Unknown]
  - Off label use [Unknown]
  - Death [Fatal]
  - Product use in unapproved indication [Unknown]
